FAERS Safety Report 10014969 (Version 1)
Quarter: 2014Q1

REPORT INFORMATION
  Report Type: Spontaneous
  Country: IT (occurrence: IT)
  Receive Date: 20140317
  Receipt Date: 20140317
  Transmission Date: 20141002
  Serious: Yes (Hospitalization)
  Sender: FDA-Public Use
  Company Number: IT-ACTAVIS-2014-05055

PATIENT
  Age: 49 Year
  Sex: Male

DRUGS (2)
  1. KETOROLAC [Suspect]
     Indication: SCIATICA
     Dosage: 2 DF, DAILY
     Route: 030
     Dates: start: 20140110, end: 20140114
  2. DICLOFENAC [Suspect]
     Indication: SCIATICA
     Dosage: 2 DF, DAILY
     Route: 030
     Dates: start: 20140110, end: 20140114

REACTIONS (3)
  - Anaemia [Recovering/Resolving]
  - Duodenal ulcer haemorrhage [Recovering/Resolving]
  - Melaena [Recovering/Resolving]
